FAERS Safety Report 23263456 (Version 1)
Quarter: 2023Q4

REPORT INFORMATION
  Report Type: Spontaneous
  Country: US (occurrence: None)
  Receive Date: 20231204
  Receipt Date: 20231204
  Transmission Date: 20240110
  Serious: Yes (Hospitalization, Disabling)
  Sender: FDA-Public Use
  Company Number: None

PATIENT
  Age: 46 Year
  Sex: Female

DRUGS (1)
  1. LEVAQUIN [Suspect]
     Active Substance: LEVOFLOXACIN
     Indication: Respiratory tract infection viral
     Dates: start: 20100716, end: 20100722

REACTIONS (35)
  - Hypoaesthesia [None]
  - Hypoaesthesia [None]
  - Lip swelling [None]
  - Eye swelling [None]
  - Hypopnoea [None]
  - Dyspnoea [None]
  - Abdominal pain [None]
  - Peroneal nerve palsy [None]
  - Limb injury [None]
  - Tendon rupture [None]
  - Tendonitis [None]
  - Tenosynovitis stenosans [None]
  - Carpal tunnel syndrome [None]
  - Plantar fasciitis [None]
  - Arthralgia [None]
  - Headache [None]
  - Tinnitus [None]
  - Neuropathy peripheral [None]
  - Nerve injury [None]
  - Connective tissue disorder [None]
  - Emotional distress [None]
  - Toxicity to various agents [None]
  - Swelling face [None]
  - Rash [None]
  - Erythema [None]
  - Pallor [None]
  - Arthralgia [None]
  - Pain [None]
  - Nervous system disorder [None]
  - Autonomic neuropathy [None]
  - Anxiety [None]
  - Gastrointestinal disorder [None]
  - Asthenia [None]
  - Muscular weakness [None]
  - Oxygen saturation decreased [None]

NARRATIVE: CASE EVENT DATE: 20100716
